FAERS Safety Report 16535158 (Version 1)
Quarter: 2019Q3

REPORT INFORMATION
  Report Type: Spontaneous
  Country: US (occurrence: US)
  Receive Date: 20190705
  Receipt Date: 20190705
  Transmission Date: 20191004
  Serious: Yes (Hospitalization, Other)
  Sender: FDA-Public Use
  Company Number: US-AVADEL LEGACY PHARMACEUTICALS, LLC-2018AVA00503

PATIENT
  Age: 62 Year
  Sex: Female
  Weight: 63.5 kg

DRUGS (22)
  1. AZELASTINE. [Concomitant]
     Active Substance: AZELASTINE HYDROCHLORIDE
     Dosage: 1 DOSAGE UNITS, UP TO 2X/DAY
     Route: 045
  2. DULOXETINE DR/EC [Concomitant]
     Dosage: 60 MG, 1X/DAY
  3. OXYCODONE - ACETAMINOPHEN [Concomitant]
     Active Substance: ACETAMINOPHEN\OXYCODONE HYDROCHLORIDE
     Dosage: 1 TABLETS, UP TO 6X/DAY
  4. MIDAZOLAM [Concomitant]
     Active Substance: MIDAZOLAM HYDROCHLORIDE
     Dosage: 2 MG, ONCE
     Route: 042
     Dates: start: 20181126, end: 20181126
  5. PROPOFOL. [Concomitant]
     Active Substance: PROPOFOL
     Dosage: 150 MG, TWICE
     Route: 042
     Dates: start: 20181126, end: 20181126
  6. FENTANYL. [Concomitant]
     Active Substance: FENTANYL
     Dosage: 25 ?G, ONCE
     Route: 042
     Dates: start: 20181126, end: 20181126
  7. TRANEXAMIC ACID. [Concomitant]
     Active Substance: TRANEXAMIC ACID
     Dosage: 1000 MG, TWICE
     Route: 042
     Dates: start: 20181126, end: 20181126
  8. CEFAZOLIN [Concomitant]
     Active Substance: CEFAZOLIN
     Dosage: 2 G, ONCE
     Route: 042
     Dates: start: 20181126, end: 20181126
  9. BUPROPION HYDROCHLORIDE XL [Concomitant]
     Active Substance: BUPROPION HYDROCHLORIDE
     Dosage: 300 MG, 1X/DAY EVERY MORNING
  10. LIDOCAINE. [Concomitant]
     Active Substance: LIDOCAINE
     Dosage: 50 MG, ONCE
     Route: 042
     Dates: start: 20181126, end: 20181126
  11. ALPRAZOLAM. [Concomitant]
     Active Substance: ALPRAZOLAM
     Dosage: 0.25 MG, UP TO 2X/DAY
  12. ONDANSETRON [Concomitant]
     Active Substance: ONDANSETRON
     Dosage: 8 MG, ONCE
     Route: 042
     Dates: start: 20181126, end: 20181126
  13. KETOROLAC [Concomitant]
     Active Substance: KETOROLAC TROMETHAMINE
     Dosage: 30 MG, ONCE
     Route: 042
     Dates: start: 20181126, end: 20181126
  14. FENTANYL. [Concomitant]
     Active Substance: FENTANYL
     Dosage: 50 ?G, ONCE
     Route: 042
     Dates: start: 20181126, end: 20181126
  15. GLYCOPYRROLATE. [Concomitant]
     Active Substance: GLYCOPYRROLATE
     Dosage: 0.8 MG, ONCE
     Route: 042
     Dates: start: 20181126, end: 20181126
  16. MONTELUKAST [Concomitant]
     Active Substance: MONTELUKAST SODIUM
     Dosage: 10 MG, 1X/DAY
  17. FENTANYL. [Concomitant]
     Active Substance: FENTANYL
     Dosage: 100 ?G, ONCE
     Route: 042
     Dates: start: 20181126, end: 20181126
  18. DEXAMETHASONE. [Concomitant]
     Active Substance: DEXAMETHASONE
     Dosage: 4 MG, ONCE
     Route: 042
     Dates: start: 20181126, end: 20181126
  19. ROCURONIUM [Concomitant]
     Active Substance: ROCURONIUM BROMIDE
     Dosage: 10 MG, ONCE
     Route: 042
     Dates: start: 20181126, end: 20181126
  20. ROSUVASTATIN. [Concomitant]
     Active Substance: ROSUVASTATIN
     Dosage: 10 MG, 1X/DAY
  21. BLOXIVERZ [Suspect]
     Active Substance: NEOSTIGMINE METHYLSULFATE
     Indication: ANAESTHESIA REVERSAL
     Dosage: 4 MG, ONCE
     Route: 042
     Dates: start: 20181126, end: 20181126
  22. ROCURONIUM [Concomitant]
     Active Substance: ROCURONIUM BROMIDE
     Dosage: 50 MG, ONCE
     Route: 042
     Dates: start: 20181126, end: 20181126

REACTIONS (1)
  - Drug ineffective [Recovered/Resolved]

NARRATIVE: CASE EVENT DATE: 20181126
